FAERS Safety Report 17991974 (Version 1)
Quarter: 2020Q3

REPORT INFORMATION
  Report Type: Spontaneous
  Country: CN (occurrence: CN)
  Receive Date: 20200708
  Receipt Date: 20200708
  Transmission Date: 20201103
  Serious: Yes (Life-Threatening, Other)
  Sender: FDA-Public Use
  Company Number: CN-009507513-2007CHN000461

PATIENT
  Age: 78 Year
  Sex: Female
  Weight: 55 kg

DRUGS (3)
  1. TIENAM [Suspect]
     Active Substance: CILASTATIN SODIUM\IMIPENEM
     Indication: RESPIRATORY TRACT INFECTION
  2. SODIUM CHLORIDE. [Concomitant]
     Active Substance: SODIUM CHLORIDE
     Dosage: 100 ML
     Dates: start: 20200615, end: 20200618
  3. TIENAM [Suspect]
     Active Substance: CILASTATIN SODIUM\IMIPENEM
     Indication: PYREXIA
     Dosage: 500MG Q8H IVTGG
     Route: 041
     Dates: start: 20200615, end: 20200618

REACTIONS (2)
  - Mental disorder [Recovering/Resolving]
  - Suicide attempt [Recovering/Resolving]

NARRATIVE: CASE EVENT DATE: 20200618
